FAERS Safety Report 5739637-6 (Version None)
Quarter: 2008Q2

REPORT INFORMATION
  Report Type: 
  Country: None (occurrence: None)
  Receive Date: 20080513
  Receipt Date: 20080501
  Transmission Date: 20081010
  Serious: Yes (Hospitalization)
  Sender: FDA-Public Use
  Company Number: 2008-01273

PATIENT
  Age: 54 Year
  Sex: Female
  Weight: 81 kg

DRUGS (10)
  1. VELCADE [Suspect]
     Indication: MULTIPLE MYELOMA
     Dosage: 1.3 MG/M2, INTRAVENOUS
     Route: 042
     Dates: start: 20071112, end: 20080201
  2. VELCADE [Suspect]
  3. VELCADE [Suspect]
  4. VELCADE [Suspect]
  5. DEXAMETHASONE TAB [Concomitant]
  6. OMEPRAZOLE [Concomitant]
  7. GLICLAZIDE [Concomitant]
  8. METFORMIN HCL [Concomitant]
  9. AMIODARONE [Concomitant]
  10. TINZAPARIN [Concomitant]

REACTIONS (3)
  - DISEASE PROGRESSION [None]
  - DRUG INEFFECTIVE [None]
  - PAIN IN EXTREMITY [None]
